FAERS Safety Report 5019414-4 (Version None)
Quarter: 2006Q2

REPORT INFORMATION
  Report Type: 
  Country: None (occurrence: None)
  Receive Date: 20060530
  Receipt Date: 20060516
  Transmission Date: 20061013
  Serious: Yes (Other)
  Sender: FDA-Public Use
  Company Number: 200612760BWH

PATIENT
  Age: 62 Year
  Sex: Female
  Weight: 82.5547 kg

DRUGS (4)
  1. NEXAVAR [Suspect]
     Indication: METASTASES TO LIVER
     Dosage: SEE IMAGE
     Route: 048
     Dates: start: 20060224, end: 20060501
  2. NEXAVAR [Suspect]
     Indication: RENAL CELL CARCINOMA STAGE UNSPECIFIED
     Dosage: SEE IMAGE
     Route: 048
     Dates: start: 20060224, end: 20060501
  3. NEXAVAR [Suspect]
     Indication: METASTASES TO LIVER
     Dosage: SEE IMAGE
     Route: 048
     Dates: start: 20060501
  4. NEXAVAR [Suspect]
     Indication: RENAL CELL CARCINOMA STAGE UNSPECIFIED
     Dosage: SEE IMAGE
     Route: 048
     Dates: start: 20060501

REACTIONS (4)
  - HAEMOPTYSIS [None]
  - NAUSEA [None]
  - OESOPHAGEAL ULCER [None]
  - VOMITING [None]
